FAERS Safety Report 17241999 (Version 1)
Quarter: 2020Q1

REPORT INFORMATION
  Report Type: Spontaneous
  Country: SE (occurrence: SE)
  Receive Date: 20200107
  Receipt Date: 20200107
  Transmission Date: 20200409
  Serious: Yes (Hospitalization)
  Sender: FDA-Public Use
  Company Number: SE-TEVA-2019-SE-1161887

PATIENT
  Age: 20 Year
  Sex: Female

DRUGS (7)
  1. DULOXETINE. [Suspect]
     Active Substance: DULOXETINE
     Dosage: 13 DULOXETIN 30 MG
     Route: 048
     Dates: start: 20190217, end: 20190217
  2. STRATTERA [Concomitant]
     Active Substance: ATOMOXETINE HYDROCHLORIDE
     Dosage: 20
  3. IPREN 400 MG FILMDRAGERAD TABLETT [Suspect]
     Active Substance: IBUPROFEN
     Dosage: 5 IPREN 400 MG, 2 G
     Route: 048
     Dates: start: 20190217, end: 20190217
  4. PROPAVAN [Suspect]
     Active Substance: PROPIOMAZINE
     Dosage: 20 PROPAVAN 25 MG
     Route: 048
     Dates: start: 20190217, end: 20190217
  5. NALTREXONE [Concomitant]
     Active Substance: NALTREXONE
  6. EQUASYM DEPOT [Concomitant]
     Active Substance: METHYLPHENIDATE HYDROCHLORIDE
     Dosage: 20
  7. NIPAXON [NOSCAPINE] [Suspect]
     Active Substance: NOSCAPINE
     Dosage: 12 NIPAXON 50 MG, 600 MG
     Route: 048
     Dates: start: 20190217, end: 20190217

REACTIONS (5)
  - Loss of consciousness [Unknown]
  - Tachycardia [Unknown]
  - Intentional self-injury [Unknown]
  - Intentional overdose [Unknown]
  - Pupillary reflex impaired [Unknown]

NARRATIVE: CASE EVENT DATE: 20190217
